FAERS Safety Report 8027682-X (Version None)
Quarter: 2012Q1

REPORT INFORMATION
  Report Type: 
  Country: None (occurrence: None)
  Receive Date: 20120106
  Receipt Date: 20120102
  Transmission Date: 20120608
  Serious: Yes (Other)
  Sender: FDA-Public Use
  Company Number: HU-PFIZER INC-2011082146

PATIENT
  Age: 83 Year
  Sex: Female

DRUGS (8)
  1. ATORVASTATIN CALCIUM [Interacting]
     Dosage: 10 MG, 1X/DAY
  2. ALLOPURINOL [Concomitant]
     Dosage: UNK
  3. ACENOCUMAROL [Interacting]
     Dosage: UNK
  4. INDAPAMIDE [Concomitant]
     Dosage: UNK
  5. SIMVASTATIN [Interacting]
     Dosage: 20 MG, 1X/DAY
  6. METFORMIN [Concomitant]
     Dosage: UNK
  7. DICLOFENAC [Suspect]
     Dosage: UNK
  8. PERINDOPRIL [Concomitant]
     Dosage: UNK

REACTIONS (3)
  - HAEMORRHAGE [None]
  - DRUG INTERACTION [None]
  - INTERNATIONAL NORMALISED RATIO INCREASED [None]
